FAERS Safety Report 20605141 (Version 1)
Quarter: 2022Q1

REPORT INFORMATION
  Report Type: Spontaneous
  Country: SE (occurrence: SE)
  Receive Date: 20220317
  Receipt Date: 20220317
  Transmission Date: 20220423
  Serious: Yes (Other)
  Sender: FDA-Public Use
  Company Number: SE-TEVA-2022-SE-2015419

PATIENT
  Age: 22 Year
  Sex: Female

DRUGS (1)
  1. PREDNISOLONE [Suspect]
     Active Substance: PREDNISOLONE
     Route: 048
     Dates: end: 201909

REACTIONS (2)
  - Glaucoma [Unknown]
  - Hallucination [Unknown]

NARRATIVE: CASE EVENT DATE: 20190801
